FAERS Safety Report 5849757-3 (Version None)
Quarter: 2008Q3

REPORT INFORMATION
  Report Type: 
  Country: None (occurrence: None)
  Receive Date: 20080819
  Receipt Date: 20080814
  Transmission Date: 20090109
  Serious: Yes (Death)
  Sender: FDA-Public Use
  Company Number: US-CELGENEUS-163-21880-08071837

PATIENT
  Sex: Male

DRUGS (5)
  1. REVLIMID [Suspect]
     Indication: MULTIPLE MYELOMA
     Route: 048
     Dates: start: 20071217, end: 20080301
  2. REVLIMID [Suspect]
     Route: 048
     Dates: start: 20071025, end: 20071101
  3. REVLIMID [Suspect]
     Route: 048
     Dates: start: 20070913, end: 20071001
  4. REVLIMID [Suspect]
     Route: 048
     Dates: start: 20080321
  5. REVLIMID [Suspect]
     Route: 048
     Dates: start: 20080620

REACTIONS (1)
  - NEOPLASM MALIGNANT [None]
